FAERS Safety Report 14228831 (Version 3)
Quarter: 2019Q4

REPORT INFORMATION
  Report Type: Spontaneous
  Country: US (occurrence: US)
  Receive Date: 20171128
  Receipt Date: 20191018
  Transmission Date: 20200122
  Serious: Yes (Other)
  Sender: FDA-Public Use
  Company Number: PHEH2017US038319

PATIENT
  Age: 44 Year
  Sex: Female
  Weight: 58.97 kg

DRUGS (2)
  1. ZOFRAN [Suspect]
     Active Substance: ONDANSETRON HYDROCHLORIDE
     Indication: PRODUCT USED FOR UNKNOWN INDICATION
     Route: 042
  2. ZOFRAN [Suspect]
     Active Substance: ONDANSETRON HYDROCHLORIDE
     Indication: MORNING SICKNESS
     Route: 048
     Dates: start: 1999, end: 200007

REACTIONS (14)
  - Pre-eclampsia [Unknown]
  - Cardiac murmur [Unknown]
  - Muscle spasms [Unknown]
  - Oedema peripheral [Unknown]
  - Pregnancy with advanced maternal age [Unknown]
  - Multiple pregnancy [Unknown]
  - Product use in unapproved indication [Unknown]
  - Maternal exposure during pregnancy [Unknown]
  - Constipation [Unknown]
  - Gestational diabetes [Unknown]
  - Complication of pregnancy [Unknown]
  - Emotional distress [Unknown]
  - Injury [Unknown]
  - Premature delivery [Unknown]

NARRATIVE: CASE EVENT DATE: 20000731
